FAERS Safety Report 8825786 (Version 1)
Quarter: 2012Q4

REPORT INFORMATION
  Report Type: 
  Country: US (occurrence: US)
  Receive Date: 20121004
  Receipt Date: 20121004
  Transmission Date: 20130627
  Serious: No
  Sender: FDA-Public Use
  Company Number: US-B.I. PHARMACEUTICALS,INC./RIDGEFIELD-2012-BP-23652BP

PATIENT
  Sex: Male

DRUGS (2)
  1. COMBIVENT [Suspect]
     Route: 055
  2. ALBUTEROL [Concomitant]
     Route: 055

REACTIONS (2)
  - Dry mouth [Unknown]
  - Mucous membrane disorder [Unknown]
